FAERS Safety Report 13996263 (Version 4)
Quarter: 2018Q1

REPORT INFORMATION
  Report Type: Report from Study
  Country: None (occurrence: US)
  Receive Date: 20170921
  Receipt Date: 20180131
  Transmission Date: 20180508
  Serious: Yes (Hospitalization)
  Sender: FDA-Public Use
  Company Number: US-ABBVIE-17K-163-2107592-00

PATIENT
  Age: 17 Year
  Sex: Male

DRUGS (4)
  1. HUMIRA [Suspect]
     Active Substance: ADALIMUMAB
     Route: 058
     Dates: start: 20170811, end: 2017
  2. HUMIRA [Suspect]
     Active Substance: ADALIMUMAB
     Route: 058
     Dates: start: 2017, end: 20171008
  3. HUMIRA [Suspect]
     Active Substance: ADALIMUMAB
     Dosage: DAY 15
     Route: 058
     Dates: start: 20170727, end: 20170727
  4. HUMIRA [Suspect]
     Active Substance: ADALIMUMAB
     Indication: CROHN^S DISEASE
     Dosage: DAY 1
     Route: 058
     Dates: start: 20170712, end: 20170712

REACTIONS (11)
  - Anxiety [Unknown]
  - Intestinal fistula [Unknown]
  - Hypophagia [Recovering/Resolving]
  - Diarrhoea [Unknown]
  - Gastrointestinal pain [Unknown]
  - Malaise [Not Recovered/Not Resolved]
  - Loss of personal independence in daily activities [Unknown]
  - Gastrointestinal infection [Recovering/Resolving]
  - Chest discomfort [Unknown]
  - Fear [Unknown]
  - Nasopharyngitis [Unknown]

NARRATIVE: CASE EVENT DATE: 2017
